FAERS Safety Report 6709564-6 (Version None)
Quarter: 2010Q2

REPORT INFORMATION
  Report Type: 
  Country: None (occurrence: None)
  Receive Date: 20100429
  Receipt Date: 20100415
  Transmission Date: 20101027
  Serious: Yes (Hospitalization)
  Sender: FDA-Public Use
  Company Number: 8048186

PATIENT
  Sex: Male
  Weight: 72 kg

DRUGS (6)
  1. CERTOLIZUMAB PEGOL (CDP870) [Suspect]
     Indication: RHEUMATOID ARTHRITIS
     Dosage: 400 MG 1X/2 WEEKS SUBCUTANEOUS, (400 MG 1/2 WEEKS SUBCUTANEOUS)
     Route: 058
     Dates: start: 20050804, end: 20090603
  2. CERTOLIZUMAB PEGOL (CDP870) [Suspect]
     Indication: RHEUMATOID ARTHRITIS
     Dosage: 400 MG 1X/2 WEEKS SUBCUTANEOUS, (400 MG 1/2 WEEKS SUBCUTANEOUS)
     Route: 058
     Dates: start: 20090729
  3. METHOTREXATE [Concomitant]
  4. METHYLPREDNISOLONE 4MG TAB [Concomitant]
  5. ACIDUM FOLICUM [Concomitant]
  6. KALIUM CHLORATUM [Concomitant]

REACTIONS (14)
  - ABSCESS SOFT TISSUE [None]
  - ARTHRITIS SALMONELLA [None]
  - BACTERIAL INFECTION [None]
  - DIVERTICULITIS [None]
  - GROIN ABSCESS [None]
  - LIMB TRAUMATIC AMPUTATION [None]
  - OSTEONECROSIS [None]
  - PATHOGEN RESISTANCE [None]
  - PERIARTICULAR DISORDER [None]
  - PROCEDURAL SITE REACTION [None]
  - PURULENT SYNOVITIS [None]
  - RED BLOOD CELL COUNT DECREASED [None]
  - SCAR [None]
  - SEPSIS [None]
